FAERS Safety Report 25635680 (Version 1)
Quarter: 2025Q3

REPORT INFORMATION
  Report Type: Spontaneous
  Country: US (occurrence: US)
  Receive Date: 20250802
  Receipt Date: 20250802
  Transmission Date: 20251020
  Serious: No
  Sender: DR REDDYS
  Company Number: US-DRL-USA-USA/2025/07/011539

PATIENT
  Age: 84 Year
  Sex: Male

DRUGS (6)
  1. CARBIDOPA AND LEVODOPA [Suspect]
     Active Substance: CARBIDOPA\LEVODOPA
     Indication: Abdominal pain
     Dosage: 25/100 MG, 3 TABLETS FIVE TIMES A DAY
  2. LORAZEPAM [Suspect]
     Active Substance: LORAZEPAM
     Indication: Abdominal pain
  3. QUETIAPINE [Suspect]
     Active Substance: QUETIAPINE
     Indication: Abdominal pain
  4. MIRTAZAPINE [Concomitant]
     Active Substance: MIRTAZAPINE
     Indication: Abdominal pain
  5. CLONAZEPAM [Concomitant]
     Active Substance: CLONAZEPAM
     Indication: Abdominal pain
  6. ALPRAZOLAM [Concomitant]
     Active Substance: ALPRAZOLAM
     Indication: Abdominal pain

REACTIONS (3)
  - Intentional product misuse [Unknown]
  - Treatment failure [Unknown]
  - Product use in unapproved indication [Unknown]
